FAERS Safety Report 6569261-7 (Version None)
Quarter: 2010Q1

REPORT INFORMATION
  Report Type: 
  Country: None (occurrence: None)
  Receive Date: 20100203
  Receipt Date: 20100129
  Transmission Date: 20100710
  Serious: Yes (Death)
  Sender: FDA-Public Use
  Company Number: UG-GILEAD-2010-0026817

PATIENT
  Age: 39 Year
  Sex: Male
  Weight: 42 kg

DRUGS (11)
  1. TRUVADA [Suspect]
     Indication: HIV INFECTION
     Route: 048
     Dates: start: 20090402, end: 20090429
  2. EMTRIVA [Suspect]
     Indication: HIV INFECTION
     Route: 048
     Dates: start: 20090511, end: 20090626
  3. EFAVIRENZ [Suspect]
     Indication: HIV INFECTION
     Route: 048
     Dates: start: 20090402, end: 20090626
  4. RIFAMPICIN [Concomitant]
     Dates: start: 20090320
  5. ISONIAZID [Concomitant]
     Dates: start: 20090320
  6. FLUCONAZOLE [Concomitant]
     Dates: start: 20090320
  7. PYRIDOXINE [Concomitant]
     Dates: start: 20090320
  8. METOCLOPRAMIDE [Concomitant]
  9. CEFTAZIDIME [Concomitant]
  10. LACTATED RINGER'S [Concomitant]
  11. NORMAL SALINE [Concomitant]

REACTIONS (1)
  - HYPONATRAEMIA [None]
